FAERS Safety Report 4837536-5 (Version None)
Quarter: 2005Q4

REPORT INFORMATION
  Report Type: 
  Country: None (occurrence: None)
  Receive Date: 20051123
  Receipt Date: 20051123
  Transmission Date: 20060501
  Serious: No
  Sender: FDA-Public Use
  Company Number: None

PATIENT
  Age: 69 Year
  Sex: Male
  Weight: 90.7 kg

DRUGS (17)
  1. LISINOPRIL [Suspect]
     Dosage: 40MG, 40MG QD, ORAL
     Route: 048
  2. SIMVASTATIN [Concomitant]
  3. NIFEDIPINE [Concomitant]
  4. SODIUM CHLORIDE [Concomitant]
  5. POVIDONE IODINE [Concomitant]
  6. DOXAZOSIN MESYLATE [Concomitant]
  7. GEMFIBROZIL [Concomitant]
  8. HYDROCHLOROTHIAZIDE [Concomitant]
  9. NITROGLYCERIN [Concomitant]
  10. PROCHLORPERAZINE MALEATE [Concomitant]
  11. TRAMADOL HCL [Concomitant]
  12. FLUTICASONE PROP [Concomitant]
  13. PAROXETINE HCL [Concomitant]
  14. MULTI-VITAMIN [Concomitant]
  15. FINASTERIDE [Concomitant]
  16. CLOPIDOGREL BISULFATE [Concomitant]
  17. GABAPENTIN [Concomitant]

REACTIONS (1)
  - SWELLING [None]
